FAERS Safety Report 5137570-4 (Version None)
Quarter: 2006Q4

REPORT INFORMATION
  Report Type: 
  Country: None (occurrence: None)
  Receive Date: 20061030
  Receipt Date: 20051122
  Transmission Date: 20070319
  Serious: No
  Sender: FDA-Public Use
  Company Number: US-GLAXOSMITHKLINE-A0583442A

PATIENT
  Age: 81 Year
  Sex: Female

DRUGS (4)
  1. ADVAIR HFA [Suspect]
     Indication: ASTHMA
     Dosage: 1PUFF IN THE MORNING
     Route: 055
  2. TOPROL-XL [Concomitant]
  3. NEXIUM [Concomitant]
  4. CALCIUM GLUCONATE [Concomitant]

REACTIONS (2)
  - CANDIDIASIS [None]
  - DRY MOUTH [None]
